FAERS Safety Report 15363429 (Version 4)
Quarter: 2018Q4

REPORT INFORMATION
  Report Type: Spontaneous
  Country: US (occurrence: US)
  Receive Date: 20180907
  Receipt Date: 20181126
  Transmission Date: 20190204
  Serious: Yes (Death, Hospitalization)
  Sender: FDA-Public Use
  Company Number: US-ACTELION-A-US2018-178369

PATIENT
  Age: 57 Year
  Sex: Male
  Weight: 75.28 kg

DRUGS (4)
  1. REVATIO [Concomitant]
     Active Substance: SILDENAFIL CITRATE
  2. REMODULIN [Concomitant]
     Active Substance: TREPROSTINIL
     Dosage: UNK
  3. TRACLEER [Suspect]
     Active Substance: BOSENTAN
     Indication: PULMONARY ARTERIAL HYPERTENSION
     Dosage: 125 MG, BID
     Route: 048
     Dates: start: 2018, end: 20181118
  4. TYVASO [Suspect]
     Active Substance: TREPROSTINIL
     Indication: PRODUCT USED FOR UNKNOWN INDICATION
     Route: 065

REACTIONS (13)
  - Weight increased [Unknown]
  - Abdominal distension [Unknown]
  - Dyspnoea exertional [Unknown]
  - Death [Fatal]
  - Dyspnoea [Unknown]
  - Oedema peripheral [Unknown]
  - Malaise [Unknown]
  - Fluid retention [Unknown]
  - Concomitant disease aggravated [Unknown]
  - Fatigue [Unknown]
  - Therapy change [Unknown]
  - Feeling abnormal [Unknown]
  - Oedema [Unknown]

NARRATIVE: CASE EVENT DATE: 201808
